FAERS Safety Report 5255639-0 (Version None)
Quarter: 2007Q1

REPORT INFORMATION
  Report Type: 
  Country: None (occurrence: None)
  Receive Date: 20070305
  Receipt Date: 20070221
  Transmission Date: 20070707
  Serious: Yes (Disabling)
  Sender: FDA-Public Use
  Company Number: NL-PFIZER INC-2007014832

PATIENT
  Sex: Male

DRUGS (1)
  1. PREGABALIN [Suspect]
     Indication: NEURALGIA
     Route: 048

REACTIONS (4)
  - MEMORY IMPAIRMENT [None]
  - MUSCLE SPASMS [None]
  - OEDEMA PERIPHERAL [None]
  - SEXUAL DYSFUNCTION [None]
